FAERS Safety Report 5088667-9 (Version None)
Quarter: 2006Q3

REPORT INFORMATION
  Report Type: 
  Country: None (occurrence: None)
  Receive Date: 20060822
  Receipt Date: 20060810
  Transmission Date: 20061208
  Serious: Yes (Other)
  Sender: FDA-Public Use
  Company Number: HQWYE102125MAR04

PATIENT
  Age: 39 Year
  Sex: Female
  Weight: 59.2 kg

DRUGS (4)
  1. MYLOTARG [Suspect]
     Indication: ACUTE MYELOID LEUKAEMIA
     Dosage: 15 MG 1X PER 1 DAY, I NTRAVENOUS
     Dates: start: 20030507, end: 20030507
  2. VORICONAZOLE (VORICONAZOLE) [Concomitant]
  3. FAMOTIDINE [Concomitant]
  4. AMPICILLIN [Concomitant]

REACTIONS (1)
  - INFUSION RELATED REACTION [None]
